FAERS Safety Report 8130549-X (Version None)
Quarter: 2012Q1

REPORT INFORMATION
  Report Type: 
  Country: None (occurrence: None)
  Receive Date: 20120210
  Receipt Date: 20120206
  Transmission Date: 20120608
  Serious: Yes (Death)
  Sender: FDA-Public Use
  Company Number: FR-ASTRAZENECA-2012SE08099

PATIENT
  Sex: Female

DRUGS (13)
  1. LOVENOX [Concomitant]
  2. NEXIUM [Suspect]
     Route: 048
     Dates: start: 20111122
  3. CORTICOTHERAPY [Suspect]
     Indication: METASTATIC NEOPLASM
     Route: 065
     Dates: start: 20111122
  4. ACETAMINOPHEN [Concomitant]
  5. ORAMORPH SR [Concomitant]
  6. LYRICA [Suspect]
     Indication: PAIN
     Route: 048
     Dates: start: 20111117
  7. AVASTIN [Suspect]
     Route: 042
     Dates: start: 20100701, end: 20111117
  8. CLONAZEPAM [Suspect]
     Route: 048
     Dates: start: 20111117
  9. ZOMETA [Suspect]
     Indication: METASTASES TO BONE
     Route: 042
     Dates: start: 20110106, end: 20111121
  10. NICARDIPINE HCL [Suspect]
     Indication: HYPERTENSION
     Route: 065
     Dates: start: 20111123
  11. PRIMPERAN TAB [Suspect]
     Indication: VOMITING
     Route: 048
     Dates: start: 20111126
  12. DURAGESIC-100 [Concomitant]
  13. ARIMIDEX [Suspect]
     Indication: BREAST CANCER METASTATIC
     Route: 048
     Dates: start: 20110106, end: 20111117

REACTIONS (2)
  - INTESTINAL INFARCTION [None]
  - HYPERTENSION [None]
